FAERS Safety Report 10489917 (Version 2)
Quarter: 2014Q4

REPORT INFORMATION
  Report Type: Report from Study
  Country: MX (occurrence: MX)
  Receive Date: 20141002
  Receipt Date: 20141022
  Transmission Date: 20150528
  Serious: Yes (Other)
  Sender: FDA-Public Use
  Company Number: PHHY2014MX128634

PATIENT
  Age: 83 Year
  Sex: Female
  Weight: 75 kg

DRUGS (8)
  1. EXFORGE [Concomitant]
     Active Substance: AMLODIPINE BESYLATE\VALSARTAN
     Indication: HYPERTENSION
     Dosage: 1 UKN, DAILY
     Route: 065
     Dates: start: 2011
  2. ONBREZ [Suspect]
     Active Substance: INDACATEROL
     Indication: OFF LABEL USE
  3. SPIRIVA [Concomitant]
     Active Substance: TIOTROPIUM BROMIDE MONOHYDRATE
     Indication: ASTHMA
     Dosage: 1 UKN, DAILY
     Route: 065
  4. ONBREZ [Suspect]
     Active Substance: INDACATEROL
     Indication: ASTHMA
     Dosage: 1 UKN, DAILY
     Route: 065
     Dates: end: 201409
  5. ONBREZ [Suspect]
     Active Substance: INDACATEROL
     Indication: OFF LABEL USE
  6. MIFLONIDE [Suspect]
     Active Substance: BUDESONIDE
     Indication: ASTHMA
     Dosage: 1 DF, BID
     Route: 055
  7. MIFLONIDE [Suspect]
     Active Substance: BUDESONIDE
     Indication: OFF LABEL USE
     Dosage: 1 DF, QD
     Route: 055
     Dates: end: 201409
  8. ONBREZ [Suspect]
     Active Substance: INDACATEROL
     Indication: ASTHMA

REACTIONS (3)
  - Overweight [Not Recovered/Not Resolved]
  - Dry throat [Recovered/Resolved]
  - Pneumonia [Recovering/Resolving]

NARRATIVE: CASE EVENT DATE: 201409
